FAERS Safety Report 7283686-6 (Version None)
Quarter: 2011Q1

REPORT INFORMATION
  Report Type: 
  Country: None (occurrence: None)
  Receive Date: 20110204
  Receipt Date: 20110204
  Transmission Date: 20110831
  Serious: Yes (Life-Threatening)
  Sender: FDA-Public Use
  Company Number: None

PATIENT
  Sex: Female
  Weight: 60.3284 kg

DRUGS (1)
  1. CLINDAMYCIN HCL [Suspect]
     Indication: TOOTHACHE
     Dosage: 300 MG 3 TIMES DAY 8 DAYS
     Dates: start: 20101201, end: 20101207

REACTIONS (4)
  - ABDOMINAL PAIN [None]
  - MOVEMENT DISORDER [None]
  - INJURY [None]
  - BACK PAIN [None]
